FAERS Safety Report 8784056 (Version 1)
Quarter: 2012Q4

REPORT INFORMATION
  Report Type: 
  Country: US (occurrence: US)
  Receive Date: 20120913
  Receipt Date: 20120913
  Transmission Date: 20130627
  Serious: No
  Sender: FDA-Public Use
  Company Number: US-VERTEX PHARMACEUTICAL INC.-AE-2012-009374

PATIENT
  Age: 66 None
  Sex: Female
  Weight: 74.91 kg

DRUGS (21)
  1. INCIVEK [Suspect]
     Indication: HEPATITIS C
     Route: 048
     Dates: start: 20120517
  2. RIBAVIRIN [Concomitant]
     Indication: HEPATITIS C
     Route: 048
     Dates: start: 20120517
  3. PEGASYS [Concomitant]
     Indication: HEPATITIS C
     Route: 058
     Dates: start: 20120517
  4. GABAPENTIN [Concomitant]
     Indication: NEURALGIA
     Route: 048
  5. ROPINIROLE [Concomitant]
     Indication: PARKINSON^S DISEASE
     Route: 048
  6. ROPINIROLE [Concomitant]
     Route: 048
  7. CLONAZEPAM [Concomitant]
     Indication: ANXIETY
     Route: 048
  8. FLUOXETINE [Concomitant]
     Indication: DEPRESSION
     Route: 048
  9. CETIRIZINE [Concomitant]
     Indication: HYPERSENSITIVITY
     Route: 048
  10. TRAZODONE [Concomitant]
     Indication: DEPRESSION
  11. STOOL SOFTENER [Concomitant]
     Indication: CONSTIPATION
     Route: 048
  12. MULTIVITAMIN [Concomitant]
     Route: 048
  13. VITAMIN C [Concomitant]
     Indication: MEDICAL DIET
     Route: 048
  14. CALCIUM [Concomitant]
     Indication: MEDICAL DIET
     Route: 048
  15. FISH OIL [Concomitant]
     Indication: MEDICAL DIET
     Route: 048
  16. MILK THISTLE [Concomitant]
     Route: 048
  17. LEVOTHYROXINE [Concomitant]
     Indication: HYPERTHYROIDISM
     Route: 048
  18. OMEPRAZOLE [Concomitant]
     Indication: GASTROOESOPHAGEAL REFLUX DISEASE
     Route: 048
  19. FUROSEMIDE [Concomitant]
     Indication: OEDEMA PERIPHERAL
     Route: 048
  20. POTASSIUM CHLORIDE [Concomitant]
     Indication: ELECTROLYTE SUBSTITUTION THERAPY
     Route: 048
  21. METOCLOPROMIDE [Concomitant]
     Indication: GASTRIC ULCER
     Route: 048

REACTIONS (7)
  - Heart rate increased [Not Recovered/Not Resolved]
  - White blood cell count decreased [Not Recovered/Not Resolved]
  - Dizziness [Not Recovered/Not Resolved]
  - Asthenia [Not Recovered/Not Resolved]
  - Fatigue [Not Recovered/Not Resolved]
  - Haemoglobin decreased [Not Recovered/Not Resolved]
  - Haematocrit decreased [Not Recovered/Not Resolved]
